FAERS Safety Report 23310063 (Version 1)
Quarter: 2023Q4

REPORT INFORMATION
  Report Type: Spontaneous
  Country: FR (occurrence: FR)
  Receive Date: 20231218
  Receipt Date: 20231218
  Transmission Date: 20240110
  Serious: Yes (Life-Threatening)
  Sender: FDA-Public Use
  Company Number: None

PATIENT
  Age: 26 Year
  Weight: 75 kg

DRUGS (3)
  1. DIAZEPAM [Suspect]
     Active Substance: DIAZEPAM
     Indication: Anxiety
     Route: 048
     Dates: start: 20231107, end: 20231107
  2. BUTYROLACTONE [Suspect]
     Active Substance: BUTYROLACTONE
     Route: 048
     Dates: start: 20231107, end: 20231107
  3. METHADONE HYDROCHLORIDE [Suspect]
     Active Substance: METHADONE HYDROCHLORIDE
     Indication: Drug withdrawal maintenance therapy
     Dosage: CHLORHYDRATE DE METHADONE
     Route: 048
     Dates: start: 20231107, end: 20231107

REACTIONS (4)
  - Bradypnoea [Recovered/Resolved]
  - Intentional product misuse [Recovered/Resolved]
  - Miosis [Recovered/Resolved]
  - Coma [Recovered/Resolved]

NARRATIVE: CASE EVENT DATE: 20231107
